FAERS Safety Report 20412253 (Version 1)
Quarter: 2022Q1

REPORT INFORMATION
  Report Type: Report from Study
  Country: TH (occurrence: TH)
  Receive Date: 20220201
  Receipt Date: 20220201
  Transmission Date: 20220424
  Serious: Yes (Death, Hospitalization, Other)
  Sender: FDA-Public Use
  Company Number: TH-BAYER-2022A011694

PATIENT
  Age: 61 Year
  Sex: Male

DRUGS (1)
  1. NEXAVAR [Suspect]
     Active Substance: SORAFENIB
     Indication: Hepatocellular carcinoma
     Dosage: 400 MG, BID
     Dates: start: 20211118, end: 20220117

REACTIONS (7)
  - Death [Fatal]
  - Hospitalisation [None]
  - Hepatitis [Not Recovered/Not Resolved]
  - Food refusal [None]
  - Fatigue [None]
  - Abdominal pain [None]
  - Decreased appetite [None]

NARRATIVE: CASE EVENT DATE: 20220117
